FAERS Safety Report 7244034-0 (Version None)
Quarter: 2011Q1

REPORT INFORMATION
  Report Type: 
  Country: None (occurrence: None)
  Receive Date: 20110125
  Receipt Date: 20110112
  Transmission Date: 20110831
  Serious: Yes (Hospitalization)
  Sender: FDA-Public Use
  Company Number: US-ELI_LILLY_AND_COMPANY-US201002002259

PATIENT
  Sex: Female

DRUGS (13)
  1. SEROQUEL [Concomitant]
  2. LEVOTHYROXINE SODIUM [Concomitant]
     Indication: THYROID DISORDER
  3. EVISTA [Suspect]
     Indication: OSTEOPOROSIS
     Dosage: 60 MG, DAILY (1/D)
  4. TEGRETOL [Concomitant]
  5. POTASSIUM [Concomitant]
  6. FORTEO [Suspect]
     Indication: OSTEOPOROSIS
     Dosage: 20 UG, DAILY (1/D)
     Dates: start: 20090901
  7. ZANAFLEX [Concomitant]
  8. ALLEGRA [Concomitant]
  9. TRAMADOL [Concomitant]
  10. FORTEO [Suspect]
     Dosage: 20 UG, DAILY (1/D)
  11. TOPAMAX [Concomitant]
  12. LASIX [Concomitant]
  13. ZOLOFT [Concomitant]
     Dosage: 1 D/F, EACH EVENING

REACTIONS (18)
  - COORDINATION ABNORMAL [None]
  - JAW FRACTURE [None]
  - CEREBRAL HAEMORRHAGE [None]
  - HIP FRACTURE [None]
  - DIZZINESS [None]
  - TRANSIENT ISCHAEMIC ATTACK [None]
  - BURSITIS [None]
  - ROAD TRAFFIC ACCIDENT [None]
  - ANKLE FRACTURE [None]
  - FIBROMYALGIA [None]
  - MALAISE [None]
  - DYSARTHRIA [None]
  - ARTHRALGIA [None]
  - LOWER LIMB FRACTURE [None]
  - RIB FRACTURE [None]
  - ARTHRITIS [None]
  - AMNESIA [None]
  - PAIN IN JAW [None]
